FAERS Safety Report 5802925-9 (Version None)
Quarter: 2008Q2

REPORT INFORMATION
  Report Type: 
  Country: None (occurrence: None)
  Receive Date: 20080627
  Receipt Date: 20080218
  Transmission Date: 20081010
  Serious: Yes (Hospitalization)
  Sender: FDA-Public Use
  Company Number: PHEH2008US01746

PATIENT
  Age: 65 Year
  Sex: Female
  Weight: 57 kg

DRUGS (4)
  1. RECLAST [Suspect]
     Dosage: 5 MG, INFUSION
     Dates: start: 20080124
  2. DITROPAN [Concomitant]
  3. MULTIVITAMIN ^LAPPE^ (VITAMINS NOS) [Concomitant]
  4. CALCIUM W/VITAMIN D NOS (CALCIUM , VITAMIN D NOS) [Concomitant]

REACTIONS (3)
  - BLOOD CALCIUM DECREASED [None]
  - HYPOCALCAEMIA [None]
  - PARAESTHESIA [None]
